FAERS Safety Report 21079219 (Version 1)
Quarter: 2022Q3

REPORT INFORMATION
  Report Type: Spontaneous
  Country: BR (occurrence: BR)
  Receive Date: 20220714
  Receipt Date: 20220714
  Transmission Date: 20221027
  Serious: Yes (Other)
  Sender: FDA-Public Use
  Company Number: BR-ANXN-000014

PATIENT
  Age: 50 Year
  Sex: Female

DRUGS (7)
  1. SEVELAMER [Suspect]
     Active Substance: SEVELAMER
     Indication: Off label use
     Route: 065
  2. ACETAZOLAMIDE [Suspect]
     Active Substance: ACETAZOLAMIDE
     Indication: Hyperphosphataemia
     Route: 065
  3. TERIPARATIDE [Suspect]
     Active Substance: TERIPARATIDE
     Indication: Hyperphosphataemia
     Dosage: 20MCG TWICE DAILY
     Route: 065
  4. ACETAZOLAMIDE [Suspect]
     Active Substance: ACETAZOLAMIDE
     Indication: Calcinosis
     Route: 065
  5. TERIPARATIDE [Suspect]
     Active Substance: TERIPARATIDE
     Indication: Calcinosis
     Dosage: 20MCG TWICE DAILY
     Route: 065
  6. TERIPARATIDE [Suspect]
     Active Substance: TERIPARATIDE
     Indication: Hyperphosphataemia
     Dosage: 20MCG TWICE DAILY
     Route: 065
  7. TERIPARATIDE [Suspect]
     Active Substance: TERIPARATIDE
     Indication: Calcinosis
     Dosage: 20MCG TWICE DAILY
     Route: 065

REACTIONS (5)
  - Disease progression [Unknown]
  - Off label use [Unknown]
  - Urine phosphorus increased [Unknown]
  - Calcinosis [Unknown]
  - Hypercalciuria [Unknown]
